FAERS Safety Report 4437869-0 (Version None)
Quarter: 2004Q3

REPORT INFORMATION
  Report Type: 
  Country: None (occurrence: None)
  Receive Date: 20040831
  Receipt Date: 20040625
  Transmission Date: 20050211
  Serious: Yes (Hospitalization)
  Sender: FDA-Public Use
  Company Number: PHBS2004CH08434

PATIENT
  Sex: Female

DRUGS (6)
  1. VOLTAREN [Suspect]
     Indication: PAIN
     Dates: start: 20040521, end: 20040524
  2. AUGMENTIN '125' [Suspect]
     Indication: UPPER RESPIRATORY TRACT INFECTION
     Dates: start: 20040521, end: 20040524
  3. CLINDAMYCIN HCL [Suspect]
     Indication: UPPER RESPIRATORY TRACT INFECTION
     Dosage: 1200 MG/DAY
     Dates: start: 20040524, end: 20040525
  4. IBUPROFEN [Suspect]
     Indication: PAIN
     Dosage: 1200 MG/DAY
     Dates: start: 20040524, end: 20040525
  5. TRAMAL [Concomitant]
     Indication: PAIN
     Dosage: 30 MG/DAY
     Dates: start: 20040524, end: 20040525
  6. ACETAMINOPHEN [Concomitant]
     Indication: PAIN
     Dosage: 4 G/DAY
     Dates: start: 20040524, end: 20040525

REACTIONS (4)
  - CONJUNCTIVAL HYPERAEMIA [None]
  - PAIN [None]
  - PRURITUS [None]
  - RASH MACULO-PAPULAR [None]
